FAERS Safety Report 13366260 (Version 1)
Quarter: 2017Q1

REPORT INFORMATION
  Report Type: Spontaneous
  Country: US (occurrence: US)
  Receive Date: 20170323
  Receipt Date: 20170323
  Transmission Date: 20170429
  Serious: Yes (Disabling, Other)
  Sender: FDA-Public Use
  Company Number: US-TEVA-751162USA

PATIENT
  Sex: Female

DRUGS (1)
  1. COPAXONE [Suspect]
     Active Substance: GLATIRAMER ACETATE
     Indication: MULTIPLE SCLEROSIS
     Dosage: UNKNOWN FORM STRENGTH

REACTIONS (8)
  - Panic attack [Unknown]
  - Incontinence [Unknown]
  - Seizure [Unknown]
  - Needle fatigue [Unknown]
  - Hypoaesthesia [Unknown]
  - Disability [Unknown]
  - Pollakiuria [Unknown]
  - Adverse event [Unknown]
